FAERS Safety Report 17487780 (Version 1)
Quarter: 2020Q1

REPORT INFORMATION
  Report Type: Spontaneous
  Country: US (occurrence: US)
  Receive Date: 20200220
  Receipt Date: 20200220
  Transmission Date: 20200409
  Serious: Yes (Hospitalization)
  Sender: FDA-Public Use
  Company Number: None

PATIENT
  Sex: Male

DRUGS (4)
  1. AMLODIPINE [Concomitant]
     Active Substance: AMLODIPINE BESYLATE
  2. HUMIRA [Suspect]
     Active Substance: ADALIMUMAB
     Indication: COLITIS ULCERATIVE
     Dosage: ?          OTHER FREQUENCY:EVERY OTHER;?
     Route: 058
     Dates: start: 20160129
  3. ATORVASTATIN TAB [Concomitant]
     Active Substance: ATORVASTATIN
  4. ASPIRIN LOW TAB [Concomitant]

REACTIONS (3)
  - Therapy cessation [None]
  - Product prescribing issue [None]
  - Influenza [None]
